FAERS Safety Report 6504737-X (Version None)
Quarter: 2009Q4

REPORT INFORMATION
  Report Type: 
  Country: None (occurrence: None)
  Receive Date: 20091216
  Receipt Date: 20091204
  Transmission Date: 20100525
  Serious: Yes (Hospitalization)
  Sender: FDA-Public Use
  Company Number: 2009SP040078

PATIENT
  Age: 80 Year
  Sex: Male

DRUGS (8)
  1. REFLEX (MIRTAZAPINE) [Suspect]
     Indication: DEPRESSIVE SYMPTOM
     Dosage: 15 MG;QD;PO
     Route: 048
     Dates: start: 20091118, end: 20091128
  2. DICLOFENAC SODIUM [Concomitant]
  3. SULPIRIDE [Concomitant]
  4. EPERISONE HYDROCHLORIDE [Concomitant]
  5. REBAMIPIDE [Concomitant]
  6. CANDESARTAN CILEXETIL [Concomitant]
  7. AMLDOIPINE BESILATE [Concomitant]
  8. BETAMETHASONE VALERATE/GENTAMICIN SULFATE [Concomitant]

REACTIONS (4)
  - DRUG ERUPTION [None]
  - HAEMOGLOBIN DECREASED [None]
  - JOINT SWELLING [None]
  - OEDEMA PERIPHERAL [None]
